FAERS Safety Report 5846520-4 (Version None)
Quarter: 2008Q3

REPORT INFORMATION
  Report Type: 
  Country: None (occurrence: None)
  Receive Date: 20080815
  Receipt Date: 20080802
  Transmission Date: 20090109
  Serious: Yes (Death, Other)
  Sender: FDA-Public Use
  Company Number: US-BAYER-200823927GPV

PATIENT
  Age: 66 Year
  Sex: Male

DRUGS (1)
  1. FLUDARABINE PHOSPHATE [Suspect]
     Indication: MYCOSIS FUNGOIDES
     Route: 065

REACTIONS (12)
  - ASTHENIA [None]
  - BLINDNESS [None]
  - COMA [None]
  - DISORIENTATION [None]
  - ENCEPHALOPATHY [None]
  - FACIAL PALSY [None]
  - HALLUCINATION, VISUAL [None]
  - MEMORY IMPAIRMENT [None]
  - MUSCLE SPASTICITY [None]
  - NEUROTOXICITY [None]
  - SEPSIS [None]
  - SOMNOLENCE [None]
